FAERS Safety Report 9774613 (Version 1)
Quarter: 2013Q4

REPORT INFORMATION
  Report Type: Spontaneous
  Country: US (occurrence: US)
  Receive Date: 20131220
  Receipt Date: 20131220
  Transmission Date: 20140711
  Serious: No
  Sender: FDA-Public Use
  Company Number: US-BAYER-2013-144827

PATIENT
  Age: 61 Year
  Sex: Female

DRUGS (2)
  1. CLIMARA [Suspect]
     Indication: HOT FLUSH
     Dosage: 0.05 UNK, UNK
     Route: 062
     Dates: start: 20111221
  2. CLIMARA [Suspect]
     Indication: HYPERHIDROSIS

REACTIONS (1)
  - Drug ineffective [None]
